FAERS Safety Report 16065865 (Version 1)
Quarter: 2019Q1

REPORT INFORMATION
  Report Type: Spontaneous
  Country: US (occurrence: US)
  Receive Date: 20190212
  Receipt Date: 20190212
  Transmission Date: 20190418
  Serious: No
  Sender: FDA-Public Use
  Company Number: None

PATIENT
  Age: 45 Year
  Sex: Female

DRUGS (2)
  1. LISINOPRIL TAB 10MG OPTUMRX DR. JOVANNA MORRISON [Suspect]
     Active Substance: LISINOPRIL
     Route: 048
     Dates: end: 20190212
  2. RANITIDINE. [Suspect]
     Active Substance: RANITIDINE

REACTIONS (1)
  - Cough [None]

NARRATIVE: CASE EVENT DATE: 20190212
